FAERS Safety Report 4615308-4 (Version None)
Quarter: 2005Q1

REPORT INFORMATION
  Report Type: 
  Country: None (occurrence: None)
  Receive Date: 20050317
  Receipt Date: 20050309
  Transmission Date: 20050727
  Serious: Yes (Life-Threatening, Hospitalization)
  Sender: FDA-Public Use
  Company Number: 2004SE06715

PATIENT
  Age: 80 Year
  Sex: Male

DRUGS (9)
  1. ROSUVASTATIN [Suspect]
     Indication: CARDIAC FAILURE
     Dates: start: 20040310, end: 20041203
  2. DIGOXIN [Suspect]
     Indication: CARDIAC FAILURE
     Dosage: 0.1 MG DAILY PO
     Route: 048
     Dates: end: 20040628
  3. INHIBACE [Concomitant]
  4. DOXANORM [Concomitant]
  5. CORDARONE [Concomitant]
  6. FUROSEMIDE [Concomitant]
  7. VEROSPIRON [Concomitant]
  8. MEDIGOX [Concomitant]
  9. POLOCARD [Concomitant]

REACTIONS (9)
  - ATRIAL FLUTTER [None]
  - BLOOD CREATINE INCREASED [None]
  - CARDIAC FAILURE [None]
  - CHEST PAIN [None]
  - CONDITION AGGRAVATED [None]
  - DYSPNOEA [None]
  - HEPATIC FAILURE [None]
  - HEPATOTOXICITY [None]
  - HYPERBILIRUBINAEMIA [None]
